FAERS Safety Report 4677915-2 (Version None)
Quarter: 2005Q2

REPORT INFORMATION
  Report Type: 
  Country: None (occurrence: None)
  Receive Date: 20050527
  Receipt Date: 20050527
  Transmission Date: 20051028
  Serious: Yes (Death, Life-Threatening, Hospitalization, Disabling, Congenital Anomaly)
  Sender: FDA-Public Use
  Company Number: None

PATIENT
  Age: 40 Year
  Sex: Male

DRUGS (1)
  1. ENBREL [Suspect]
     Dates: start: 20030301, end: 20030516

REACTIONS (4)
  - CALCINOSIS [None]
  - DIFFICULTY IN WALKING [None]
  - DRUG TOXICITY [None]
  - LUNG INJURY [None]
